FAERS Safety Report 24258644 (Version 2)
Quarter: 2024Q3

REPORT INFORMATION
  Report Type: Spontaneous
  Country: US (occurrence: US)
  Receive Date: 20240828
  Receipt Date: 20240903
  Transmission Date: 20241017
  Serious: Yes (Other)
  Sender: PFIZER
  Company Number: US-MLMSERVICE-20240815-PI164305-00123-1

PATIENT
  Age: 75 Year
  Sex: Female

DRUGS (2)
  1. DOCETAXEL [Suspect]
     Active Substance: DOCETAXEL\DOCETAXEL ANHYDROUS
     Indication: Squamous cell breast carcinoma
     Dosage: ONE CYCLE
  2. CYCLOPHOSPHAMIDE [Suspect]
     Active Substance: CYCLOPHOSPHAMIDE
     Indication: Metaplastic breast carcinoma
     Dosage: ONE CYCLE

REACTIONS (2)
  - Neuromyopathy [Unknown]
  - Amyotrophic lateral sclerosis [Unknown]
